FAERS Safety Report 14903781 (Version 1)
Quarter: 2018Q2

REPORT INFORMATION
  Report Type: Spontaneous
  Country: US (occurrence: US)
  Receive Date: 20180430
  Receipt Date: 20180430
  Transmission Date: 20180711
  Serious: No
  Sender: FDA-Public Use
  Company Number: None

PATIENT
  Age: 40 Year
  Sex: Male

DRUGS (2)
  1. VANCOMYCIN 10 GM FRESENIUS KABI [Suspect]
     Active Substance: VANCOMYCIN HYDROCHLORIDE
     Indication: TENOSYNOVITIS
     Route: 042
     Dates: start: 20180403, end: 20180426
  2. VANCOMYCIN 1 GM FRESENIUS KABI USA [Suspect]
     Active Substance: VANCOMYCIN
     Indication: TENOSYNOVITIS
     Route: 042
     Dates: start: 20180403, end: 20180426

REACTIONS (1)
  - Neutrophil count decreased [None]

NARRATIVE: CASE EVENT DATE: 20180426
